FAERS Safety Report 15349020 (Version 1)
Quarter: 2018Q4

REPORT INFORMATION
  Report Type: Spontaneous
  Country: JP (occurrence: JP)
  Receive Date: 20180904
  Receipt Date: 20180904
  Transmission Date: 20190204
  Serious: Yes (Other)
  Sender: FDA-Public Use
  Company Number: JP-HONG KONG KING-FRIEND INDUSTRIAL COMPANY-2018NKF00001

PATIENT
  Age: 64 Year
  Sex: Male

DRUGS (2)
  1. CARBOPLATIN. [Suspect]
     Active Substance: CARBOPLATIN
     Indication: NEOPLASM MALIGNANT
     Dosage: AREA UNDER THE CURVE 5 EVERY 3 WEEKS
     Route: 065
  2. PACLITAXEL. [Suspect]
     Active Substance: PACLITAXEL
     Indication: NEOPLASM MALIGNANT
     Dosage: 200 MG/M2, UNK, EVERY 3 WEEKS
     Route: 065

REACTIONS (1)
  - Gastritis bacterial [Unknown]
